FAERS Safety Report 6855427-5 (Version None)
Quarter: 2010Q3

REPORT INFORMATION
  Report Type: 
  Country: None (occurrence: None)
  Receive Date: 20100719
  Receipt Date: 20100712
  Transmission Date: 20110219
  Serious: No
  Sender: FDA-Public Use
  Company Number: US-BIOGENIDEC-2010BI023939

PATIENT
  Age: 52 Year
  Sex: Female

DRUGS (2)
  1. TYSABRI [Suspect]
     Indication: MULTIPLE SCLEROSIS
     Route: 042
     Dates: start: 20050126, end: 20050201
  2. TYSABRI [Suspect]
     Route: 042
     Dates: start: 20091218, end: 20100604

REACTIONS (3)
  - DISTURBANCE IN ATTENTION [None]
  - HYPOAESTHESIA [None]
  - SPEECH DISORDER [None]
